FAERS Safety Report 7510509-X (Version None)
Quarter: 2011Q2

REPORT INFORMATION
  Report Type: 
  Country: None (occurrence: None)
  Receive Date: 20110529
  Receipt Date: 20110517
  Transmission Date: 20111010
  Serious: Yes (Hospitalization)
  Sender: FDA-Public Use
  Company Number: JP-BRISTOL-MYERS SQUIBB COMPANY-15769193

PATIENT

DRUGS (3)
  1. TEGAFUR + GIMERACIL + OTERACIL POTASSIUM [Suspect]
     Indication: GASTRIC CANCER
     Route: 065
  2. DOCETAXEL [Suspect]
     Indication: GASTRIC CANCER
     Dosage: DOCETAXEL HYDRATE
     Route: 065
  3. CISPLATIN [Suspect]
     Indication: GASTRIC CANCER
     Route: 065

REACTIONS (2)
  - VENOUS THROMBOSIS LIMB [None]
  - PULMONARY EMBOLISM [None]
